FAERS Safety Report 9879751 (Version 1)
Quarter: 2014Q1

REPORT INFORMATION
  Report Type: Spontaneous
  Country: IT (occurrence: IT)
  Receive Date: 20140206
  Receipt Date: 20140206
  Transmission Date: 20141002
  Serious: Yes (Other)
  Sender: FDA-Public Use
  Company Number: IT-ACTAVIS-2014-01543

PATIENT
  Age: 73 Year
  Sex: Male
  Weight: 85 kg

DRUGS (4)
  1. IRINOTECAN (UNKNOWN) [Suspect]
     Indication: ADENOCARCINOMA OF COLON
     Dosage: 340 MG, CYCLICAL
     Route: 042
     Dates: start: 20130427, end: 20130601
  2. FLUOROURACIL (UNKNOWN) [Suspect]
     Indication: ADENOCARCINOMA OF COLON
     Dosage: 760 MG, CYCLICAL
     Route: 040
     Dates: start: 20130427, end: 20130601
  3. FLUOROURACIL (UNKNOWN) [Suspect]
     Dosage: 4500 MG, CYCLICAL
     Route: 041
     Dates: start: 20130427, end: 20130601
  4. LEVOFOLINIC ACID [Concomitant]
     Indication: PRODUCT USED FOR UNKNOWN INDICATION
     Dosage: 380 MG, UNK
     Route: 042
     Dates: start: 20130427, end: 20130601

REACTIONS (1)
  - Anaemia [Unknown]
